FAERS Safety Report 20673821 (Version 2)
Quarter: 2022Q2

REPORT INFORMATION
  Report Type: Spontaneous
  Country: CA (occurrence: CA)
  Receive Date: 20220405
  Receipt Date: 20220419
  Transmission Date: 20220721
  Serious: Yes (Other)
  Sender: FDA-Public Use
  Company Number: CA-AMERICAN REGENT INC-2022000936

PATIENT
  Age: 25 Year
  Sex: Female

DRUGS (2)
  1. VENOFER [Suspect]
     Active Substance: IRON SUCROSE
     Indication: Iron deficiency anaemia
     Dosage: 300 MILLIGRAM
     Dates: start: 20211018, end: 20211018
  2. BENADRYL [Concomitant]
     Active Substance: DIPHENHYDRAMINE HYDROCHLORIDE
     Indication: Product used for unknown indication
     Dosage: UNK
     Route: 065

REACTIONS (5)
  - Paraesthesia [Unknown]
  - Urticaria [Unknown]
  - Dizziness [Unknown]
  - Hypotension [Unknown]
  - Pruritus [Unknown]

NARRATIVE: CASE EVENT DATE: 20211018
